FAERS Safety Report 6580566-6 (Version None)
Quarter: 2010Q1

REPORT INFORMATION
  Report Type: 
  Country: None (occurrence: None)
  Receive Date: 20100212
  Receipt Date: 20100204
  Transmission Date: 20100710
  Serious: Yes (Life-Threatening, Hospitalization, Disabling, Other)
  Sender: FDA-Public Use
  Company Number: US-PFIZER INC-2005137968

PATIENT
  Sex: Male
  Weight: 136.07 kg

DRUGS (7)
  1. LIPITOR [Suspect]
     Indication: HYPERLIPIDAEMIA
     Route: 048
     Dates: start: 20050601, end: 20050101
  2. LIPITOR [Suspect]
     Dates: start: 20050601
  3. MORPHINE [Suspect]
     Indication: PAIN
     Route: 065
     Dates: start: 20051001
  4. ATENOLOL [Concomitant]
     Route: 048
  5. HUMULIN 70/30 [Concomitant]
     Route: 058
  6. ACETYLSALICYLIC ACID [Concomitant]
     Route: 048
  7. CARVEDILOL [Concomitant]
     Indication: HYPERTENSION
     Dosage: 25 MG, 1X/DAY
     Route: 048

REACTIONS (9)
  - FEAR [None]
  - ILL-DEFINED DISORDER [None]
  - INFECTION [None]
  - LEG AMPUTATION [None]
  - LEUKOCYTOCLASTIC VASCULITIS [None]
  - RASH PUSTULAR [None]
  - SKIN EXFOLIATION [None]
  - SOMNOLENCE [None]
  - STEVENS-JOHNSON SYNDROME [None]
